FAERS Safety Report 16152733 (Version 7)
Quarter: 2019Q2

REPORT INFORMATION
  Report Type: Spontaneous
  Country: DE (occurrence: DE)
  Receive Date: 20190403
  Receipt Date: 20190524
  Transmission Date: 20190711
  Serious: Yes (Hospitalization, Other)
  Sender: FDA-Public Use
  Company Number: DE-PFIZER INC-2019143379

PATIENT
  Age: 62 Year
  Sex: Female

DRUGS (50)
  1. LONOLOX [Suspect]
     Active Substance: MINOXIDIL
     Dosage: UNK
     Route: 065
     Dates: start: 201707, end: 2017
  2. NOVAMINSULFON [Suspect]
     Active Substance: METAMIZOLE
     Dosage: UNK
     Route: 065
     Dates: start: 201706, end: 2017
  3. VALSARTAN HEXAL COMP [Suspect]
     Active Substance: VALSARTAN
     Indication: HYPERTENSION
     Dosage: UNK
     Route: 065
     Dates: start: 201205, end: 2017
  4. CLINDA-SAAR [CLINDAMYCIN HYDROCHLORIDE] [Suspect]
     Active Substance: CLINDAMYCIN HYDROCHLORIDE
     Dosage: UNK
     Route: 065
     Dates: start: 201308, end: 2013
  5. LINOLA H FETT N [Suspect]
     Active Substance: PREDNISOLONE ACETATE
     Dosage: UNK
     Route: 065
     Dates: start: 201302, end: 2013
  6. AMPICILLIN RATIOPHARM [AMPICILLIN SODIUM] [Suspect]
     Active Substance: AMPICILLIN SODIUM
     Dosage: UNK
     Route: 065
     Dates: start: 201410, end: 2014
  7. EUTHYROX [Suspect]
     Active Substance: LEVOTHYROXINE SODIUM
     Dosage: UNK
     Route: 065
     Dates: start: 201204, end: 2015
  8. HCT HEXAL [Suspect]
     Active Substance: HYDROCHLOROTHIAZIDE
     Dosage: UNK
     Route: 065
     Dates: start: 201706, end: 2017
  9. LOCACORTEN VIOFORM [Suspect]
     Active Substance: CLIOQUINOL\FLUMETHASONE
     Dosage: UNK
     Route: 065
     Dates: start: 201401, end: 2014
  10. CLINDASOL [CLINDAMYCIN HYDROCHLORIDE] [Suspect]
     Active Substance: CLINDAMYCIN HYDROCHLORIDE
     Dosage: UNK
     Route: 065
     Dates: start: 201401, end: 2017
  11. DOXYCYCLIN 1A PHARMA [Suspect]
     Active Substance: DOXYCYCLINE
     Dosage: UNK
     Route: 065
     Dates: start: 201606, end: 2016
  12. CLINDAHEXAL [CLINDAMYCIN HYDROCHLORIDE] [Suspect]
     Active Substance: CLINDAMYCIN HYDROCHLORIDE
     Dosage: UNK
     Route: 065
     Dates: start: 201210, end: 2012
  13. MORONAL [Suspect]
     Active Substance: NYSTATIN
     Dosage: UNK
     Route: 065
     Dates: start: 201805, end: 2018
  14. VALSARTAN RATIOPHARM COMP [Suspect]
     Active Substance: HYDROCHLOROTHIAZIDE\VALSARTAN
     Indication: HYPERTENSION
     Dosage: UNK
     Route: 065
     Dates: start: 201201, end: 2012
  15. VALSACOR COMP [Suspect]
     Active Substance: HYDROCHLOROTHIAZIDE\VALSARTAN
     Indication: HYPERTENSION
     Dosage: UNK
     Route: 065
     Dates: start: 201602
  16. DOXAZOSIN 1 A PHARMA [Suspect]
     Active Substance: DOXAZOSIN MESYLATE
     Dosage: UNK
     Route: 065
     Dates: start: 201705, end: 2017
  17. PANTOPRAZOLE [Suspect]
     Active Substance: PANTOPRAZOLE
     Dosage: UNK
     Route: 065
     Dates: start: 201705, end: 2018
  18. LERCANIDIPIN OMNIAPHARM [Suspect]
     Active Substance: LERCANIDIPINE HYDROCHLORIDE
     Dosage: UNK
     Route: 065
     Dates: start: 201702, end: 2017
  19. IBU [Suspect]
     Active Substance: IBUPROFEN
     Dosage: UNK
     Route: 065
     Dates: start: 201404, end: 2018
  20. AZITHROMYCIN 1A PHARMA [AZITHROMYCIN] [Suspect]
     Active Substance: AZITHROMYCIN
     Dosage: UNK
     Route: 065
     Dates: start: 201406, end: 2014
  21. ALFASON CRELO [Suspect]
     Active Substance: HYDROCORTISONE BUTYRATE
     Dosage: UNK
     Route: 065
     Dates: start: 201406, end: 2014
  22. MOMETAHEXAL [Suspect]
     Active Substance: MOMETASONE
     Dosage: UNK
     Route: 045
     Dates: start: 201406, end: 2014
  23. CIPROFLOXACIN. [Suspect]
     Active Substance: CIPROFLOXACIN
     Dosage: UNK
     Route: 065
     Dates: start: 201712, end: 2018
  24. DECORTIN H [Suspect]
     Active Substance: PREDNISOLONE
     Dosage: UNK
     Route: 065
     Dates: start: 201505, end: 2015
  25. L-THYROX HEXAL [Suspect]
     Active Substance: LEVOTHYROXINE SODIUM
     Dosage: UNK
     Route: 065
     Dates: start: 201305, end: 2018
  26. DOXAGAMMA [Suspect]
     Active Substance: DOXAZOSIN MESYLATE
     Dosage: UNK
     Route: 065
     Dates: start: 201705, end: 2017
  27. COTRIM FORTE [Suspect]
     Active Substance: SULFAMETHOXAZOLE\TRIMETHOPRIM
     Dosage: UNK
     Route: 065
     Dates: start: 201702, end: 2018
  28. COTRIMOXAZOL AL [Suspect]
     Active Substance: SULFAMETHOXAZOLE\TRIMETHOPRIM
     Dosage: UNK
     Route: 065
     Dates: start: 201410, end: 2014
  29. MONURIL [Suspect]
     Active Substance: FOSFOMYCIN TROMETHAMINE
     Dosage: UNK
     Route: 065
     Dates: start: 201210, end: 2012
  30. SULFAMETHOXAZOLE W/TRIMETHOPRIM [Suspect]
     Active Substance: SULFAMETHOXAZOLE\TRIMETHOPRIM
     Dosage: UNK
     Route: 065
  31. FLUCONAZOLE. [Suspect]
     Active Substance: FLUCONAZOLE
     Dosage: UNK
     Route: 065
     Dates: start: 201805, end: 2018
  32. IBUFLAM [IBUPROFEN] [Suspect]
     Active Substance: IBUPROFEN
     Dosage: UNK
     Route: 065
     Dates: start: 201205, end: 2018
  33. EFEROX [Suspect]
     Active Substance: LEVOTHYROXINE SODIUM
     Dosage: UNK
     Route: 065
     Dates: start: 201212, end: 2013
  34. CIPROFLOXACIN ARISTO [Suspect]
     Active Substance: CIPROFLOXACIN HYDROCHLORIDE
     Dosage: UNK
     Route: 065
     Dates: start: 201511, end: 2015
  35. CLINDAMYCIN AL [Suspect]
     Active Substance: CLINDAMYCIN HYDROCHLORIDE
     Dosage: UNK
     Route: 065
     Dates: start: 201503, end: 2015
  36. VALSARTAN 1A PHARMA PLUS [Suspect]
     Active Substance: HYDROCHLOROTHIAZIDE\VALSARTAN
     Indication: HYPERTENSION
     Dosage: UNK
     Route: 065
     Dates: start: 201204, end: 2012
  37. NEBIVOLOL. [Suspect]
     Active Substance: NEBIVOLOL
     Dosage: UNK
     Route: 065
     Dates: start: 201402, end: 2018
  38. DOLGIT [Suspect]
     Active Substance: IBUPROFEN SODIUM
     Dosage: UNK
     Route: 065
     Dates: start: 201807, end: 2018
  39. CODEINTROPFEN CT [Suspect]
     Active Substance: CODEINE PHOSPHATE
     Dosage: UNK
     Route: 065
     Dates: start: 201212, end: 2013
  40. HYGROTON [Suspect]
     Active Substance: CHLORTHALIDONE
     Dosage: UNK
     Route: 065
     Dates: start: 201705, end: 2017
  41. CEFPODOXIM 1 A PHARMA [Suspect]
     Active Substance: CEFPODOXIME PROXETIL
     Dosage: UNK
     Route: 065
     Dates: start: 201311, end: 2013
  42. CEFPODOXIM HEXAL [Suspect]
     Active Substance: CEFPODOXIME PROXETIL
     Dosage: UNK
     Route: 065
     Dates: start: 201605, end: 2016
  43. CIPROFLOXACIN AL [Suspect]
     Active Substance: CIPROFLOXACIN
     Dosage: UNK
     Route: 065
     Dates: start: 201606, end: 2018
  44. VALSARTAN COMP [Suspect]
     Active Substance: HYDROCHLOROTHIAZIDE\VALSARTAN
     Indication: HYPERTENSION
     Dosage: UNK
     Route: 065
     Dates: start: 201801, end: 2018
  45. ROXITHROMYCIN [Suspect]
     Active Substance: ROXITHROMYCIN
     Dosage: UNK
     Route: 065
     Dates: start: 201311, end: 2013
  46. SPIRONOLACTON ARISTO [Suspect]
     Active Substance: SPIRONOLACTONE
     Dosage: UNK
     Route: 065
     Dates: start: 201702, end: 2017
  47. AMPHO MORONAL [Suspect]
     Active Substance: AMPHOTERICIN B
     Dosage: UNK
     Route: 065
     Dates: start: 201804, end: 2018
  48. CEFPO [Suspect]
     Active Substance: CEFPODOXIME PROXETIL
     Dosage: UNK
     Route: 065
     Dates: start: 201605, end: 2016
  49. VALSARTAN HEXAL [Suspect]
     Active Substance: VALSARTAN
     Indication: HYPERTENSION
     Dosage: UNK
     Route: 065
     Dates: start: 201705, end: 2017
  50. RASILEZ [Suspect]
     Active Substance: ALISKIREN
     Indication: BLOOD PRESSURE INCREASED
     Dosage: UNK
     Route: 065
     Dates: start: 201201, end: 2012

REACTIONS (1)
  - Bladder transitional cell carcinoma [Recovered/Resolved]

NARRATIVE: CASE EVENT DATE: 201803
